FAERS Safety Report 15190419 (Version 1)
Quarter: 2018Q3

REPORT INFORMATION
  Report Type: Spontaneous
  Country: US (occurrence: US)
  Receive Date: 20180724
  Receipt Date: 20180724
  Transmission Date: 20181010
  Serious: No
  Sender: FDA-Public Use
  Company Number: US-PFIZER INC-2018295174

PATIENT
  Age: 64 Year
  Sex: Female
  Weight: 88.44 kg

DRUGS (2)
  1. ZITHROMAX [Suspect]
     Active Substance: AZITHROMYCIN DIHYDRATE
     Indication: SINUSITIS
  2. ZITHROMAX [Suspect]
     Active Substance: AZITHROMYCIN DIHYDRATE
     Indication: UPPER RESPIRATORY TRACT INFECTION
     Dosage: 2 PILLS ON THE FIRST DAY AND 1 PILL FOR THE LAST 4 DAYS BY MOUTH)/5 DAY DOSE PACK
     Route: 048
     Dates: start: 20180705, end: 20180709

REACTIONS (3)
  - Productive cough [Unknown]
  - Pyrexia [Unknown]
  - Dysgeusia [Not Recovered/Not Resolved]

NARRATIVE: CASE EVENT DATE: 201807
